FAERS Safety Report 6647378-6 (Version None)
Quarter: 2010Q1

REPORT INFORMATION
  Report Type: 
  Country: None (occurrence: None)
  Receive Date: 20100323
  Receipt Date: 20100310
  Transmission Date: 20100710
  Serious: Yes (Hospitalization, Other)
  Sender: FDA-Public Use
  Company Number: FR-BAYER-201018782GPV

PATIENT
  Age: 75 Year
  Sex: Male

DRUGS (16)
  1. CIPROFLOXACIN HCL [Suspect]
     Indication: APPENDICITIS
     Dosage: TOTAL DAILY DOSE: 200 MG  UNIT DOSE: 2 MG/ML
     Route: 042
     Dates: start: 20100211, end: 20100212
  2. XENETIX 350 [Suspect]
     Indication: COMPUTERISED TOMOGRAM
     Dosage: TOTAL DAILY DOSE: 2 DOSAGE FORM
     Route: 042
     Dates: start: 20100211, end: 20100211
  3. AUGMENTIN [Suspect]
     Indication: APPENDICITIS
     Route: 042
     Dates: start: 20100212, end: 20100212
  4. AUGMENTIN [Suspect]
     Route: 042
     Dates: start: 20100211, end: 20100211
  5. ACTOSOLV [Suspect]
     Indication: UNEVALUABLE EVENT
     Route: 042
     Dates: start: 20100211, end: 20100211
  6. RIVOTRIL [Concomitant]
     Dosage: TOTAL DAILY DOSE: 15 GTT
  7. LASIX [Concomitant]
     Dosage: TOTAL DAILY DOSE: 1 TABLET
  8. COVERSYL [Concomitant]
     Dosage: TOTAL DAILY DOSE: 1 TABLET
  9. SPECIAFOLDINE [Concomitant]
     Dosage: TOTAL DAILY DOSE: 2 TABLETS
  10. IMOVANE [Concomitant]
     Dosage: TOTAL DAILY DOSE: 1 TABLET
  11. ASPEGIC 1000 [Concomitant]
     Dosage: TOTAL DAILY DOSE: 1 TABLET
  12. DIFFU-K [Concomitant]
     Dosage: TOTAL DAILY DOSE: 2 TABLETS
  13. NEURONTIN [Concomitant]
     Dosage: TOTAL DAILY DOSE: 1 TABLET
  14. CONTRAMAL SR [Concomitant]
     Dosage: TOTAL DAILY DOSE: 1 TABLET
  15. CORTANCYL [Concomitant]
  16. ROCEPHIN [Concomitant]
     Route: 042

REACTIONS (4)
  - DERMATITIS EXFOLIATIVE [None]
  - HYPOTENSION [None]
  - PYREXIA [None]
  - RASH PUSTULAR [None]
